FAERS Safety Report 7138950-8 (Version None)
Quarter: 2010Q4

REPORT INFORMATION
  Report Type: 
  Country: None (occurrence: None)
  Receive Date: 20101206
  Receipt Date: 20101124
  Transmission Date: 20110411
  Serious: Yes (Hospitalization)
  Sender: FDA-Public Use
  Company Number: A0875866A

PATIENT
  Age: 51 Year
  Sex: Female

DRUGS (2)
  1. AVANDIA [Suspect]
     Indication: DIABETES MELLITUS
     Dosage: 4MG TWICE PER DAY
     Route: 048
     Dates: start: 20040201, end: 20060911
  2. AVANDAMET [Suspect]
     Indication: DIABETES MELLITUS
     Dosage: 1TAB TWICE PER DAY
     Dates: start: 20010101, end: 20050901

REACTIONS (4)
  - ARTERIOSCLEROSIS [None]
  - CARDIAC DISORDER [None]
  - CAROTID ARTERY DISEASE [None]
  - MYOCARDIAL INFARCTION [None]
